FAERS Safety Report 16201856 (Version 4)
Quarter: 2021Q4

REPORT INFORMATION
  Report Type: Report from Study
  Country: US (occurrence: US)
  Receive Date: 20190416
  Receipt Date: 20211005
  Transmission Date: 20220303
  Serious: Yes (Death, Hospitalization, Other)
  Sender: FDA-Public Use
  Company Number: PHEH2019US015957

PATIENT
  Age: 54 Year
  Sex: Male

DRUGS (3)
  1. KYMRIAH [Suspect]
     Active Substance: TISAGENLECLEUCEL
     Indication: Diffuse large B-cell lymphoma
     Dosage: ONCE/SINGLE
     Route: 042
     Dates: start: 20190402, end: 20190402
  2. KYMRIAH [Suspect]
     Active Substance: TISAGENLECLEUCEL
     Indication: Diffuse large B-cell lymphoma
  3. ZOFRAN [Concomitant]
     Active Substance: ONDANSETRON HYDROCHLORIDE
     Indication: Prophylaxis of nausea and vomiting
     Dosage: UNK
     Route: 065
     Dates: start: 20190402

REACTIONS (9)
  - Diffuse large B-cell lymphoma [Fatal]
  - Blood disorder [Fatal]
  - White blood cell count increased [Unknown]
  - Bone marrow failure [Unknown]
  - Leukaemia [Unknown]
  - Full blood count decreased [Unknown]
  - Dyspnoea [Unknown]
  - Cough [Unknown]
  - Second primary malignancy [Unknown]

NARRATIVE: CASE EVENT DATE: 20190402
